FAERS Safety Report 24814715 (Version 1)
Quarter: 2025Q1

REPORT INFORMATION
  Report Type: Other
  Country: US (occurrence: US)
  Receive Date: 20250107
  Receipt Date: 20250107
  Transmission Date: 20250408
  Serious: Yes (Hospitalization)
  Sender: ADAPTIS PHARMA INDIA
  Company Number: US-Adaptis Pharma Private Limited-2168558

PATIENT
  Age: 47 Year
  Sex: Male

DRUGS (1)
  1. LEVETIRACETAM [Suspect]
     Active Substance: LEVETIRACETAM
     Indication: Post-traumatic epilepsy

REACTIONS (1)
  - Rhabdomyolysis [Recovering/Resolving]
